FAERS Safety Report 7045964-5 (Version None)
Quarter: 2010Q4

REPORT INFORMATION
  Report Type: 
  Country: None (occurrence: None)
  Receive Date: 20101014
  Receipt Date: 20101005
  Transmission Date: 20110411
  Serious: Yes (Other)
  Sender: FDA-Public Use
  Company Number: AU-PFIZER INC-2010112344

PATIENT
  Age: 82 Year
  Sex: Female

DRUGS (11)
  1. ZOLOFT [Suspect]
     Indication: DEPRESSION
     Dosage: 25 MG, 1X/DAY
  2. ZOLOFT [Suspect]
     Dosage: 50 MG, 1X/DAY
  3. PREDNISOLONE [Concomitant]
     Dosage: UNK
  4. ROXITHROMYCIN [Concomitant]
     Dosage: UNK
  5. NEULIN [Concomitant]
     Dosage: UNK
  6. NEXIUM [Concomitant]
     Dosage: UNK
  7. BROMHEXINE [Concomitant]
     Dosage: UNK
  8. METHADONE [Concomitant]
     Indication: DYSPNOEA
     Dosage: LOW DOSE
  9. SYMBICORT [Concomitant]
     Dosage: UNK
  10. SALBUTAMOL SULFATE [Concomitant]
     Dosage: UNK
  11. IPRATROPIUM BROMIDE [Concomitant]
     Dosage: UNK

REACTIONS (3)
  - BALANCE DISORDER [None]
  - HERPES ZOSTER OPHTHALMIC [None]
  - VISION BLURRED [None]
